FAERS Safety Report 7309581-1 (Version None)
Quarter: 2011Q1

REPORT INFORMATION
  Report Type: 
  Country: None (occurrence: None)
  Receive Date: 20110223
  Receipt Date: 20110214
  Transmission Date: 20110831
  Serious: Yes (Other)
  Sender: FDA-Public Use
  Company Number: US-ASTRAZENECA-2010SE56555

PATIENT
  Age: 51 Year
  Sex: Male
  Weight: 108.9 kg

DRUGS (5)
  1. SEROQUEL [Suspect]
     Indication: TACHYPHRENIA
     Dosage: 600 MG AT BEDTIME, 100 MG IN THE MORNING AND 100 MG IN THE EVENING
     Route: 048
     Dates: start: 20050101, end: 20110101
  2. SEROQUEL [Suspect]
     Indication: MAJOR DEPRESSION
     Dosage: 600 MG AT BEDTIME, 100 MG IN THE MORNING AND 100 MG IN THE EVENING
     Route: 048
     Dates: start: 20050101, end: 20110101
  3. SEROQUEL [Suspect]
     Indication: ANXIETY
     Dosage: 600 MG AT BEDTIME, 100 MG IN THE MORNING AND 100 MG IN THE EVENING
     Route: 048
     Dates: start: 20050101, end: 20110101
  4. SEROQUEL [Suspect]
     Indication: INSOMNIA
     Dosage: 600 MG AT BEDTIME, 100 MG IN THE MORNING AND 100 MG IN THE EVENING
     Route: 048
     Dates: start: 20050101, end: 20110101
  5. SEROQUEL [Suspect]
     Indication: SUICIDAL IDEATION
     Dosage: 600 MG AT BEDTIME, 100 MG IN THE MORNING AND 100 MG IN THE EVENING
     Route: 048
     Dates: start: 20050101, end: 20110101

REACTIONS (13)
  - MYOCARDIAL INFARCTION [None]
  - DEPRESSION [None]
  - ANXIETY [None]
  - DRUG DOSE OMISSION [None]
  - HYPERTENSION [None]
  - OEDEMA [None]
  - ARTERIAL OCCLUSIVE DISEASE [None]
  - HEART VALVE INCOMPETENCE [None]
  - BLOOD CHOLESTEROL INCREASED [None]
  - FEELING ABNORMAL [None]
  - TACHYPHRENIA [None]
  - HAND FRACTURE [None]
  - INSOMNIA [None]
